FAERS Safety Report 8051285-4 (Version None)
Quarter: 2012Q1

REPORT INFORMATION
  Report Type: 
  Country: None (occurrence: None)
  Receive Date: 20120117
  Receipt Date: 20120113
  Transmission Date: 20120608
  Serious: Yes (Death)
  Sender: FDA-Public Use
  Company Number: RU-ASTRAZENECA-2012SE02570

PATIENT
  Age: 56 Year
  Sex: Female
  Weight: 88 kg

DRUGS (3)
  1. DIPRIVAN [Suspect]
     Indication: ANAESTHESIA PROCEDURE
     Route: 042
     Dates: start: 20111130
  2. ATROPINE [Suspect]
  3. FENTANYL [Suspect]

REACTIONS (5)
  - ANAPHYLACTIC REACTION [None]
  - CARDIAC FAILURE [None]
  - BRONCHOSPASM [None]
  - BRAIN DEATH [None]
  - BLOOD PRESSURE DECREASED [None]
